FAERS Safety Report 9629766 (Version 1)
Quarter: 2013Q4

REPORT INFORMATION
  Report Type: Spontaneous
  Country: CZ (occurrence: CZ)
  Receive Date: 20131017
  Receipt Date: 20131017
  Transmission Date: 20140711
  Serious: Yes (Hospitalization, Other)
  Sender: FDA-Public Use
  Company Number: CZ-GLAXOSMITHKLINE-B0930416A

PATIENT
  Age: 80 Year
  Sex: Female
  Weight: 50 kg

DRUGS (1)
  1. ZINNAT [Suspect]
     Indication: CYSTITIS
     Dosage: 500MG SEE DOSAGE TEXT
     Route: 048
     Dates: start: 20130917, end: 20130923

REACTIONS (1)
  - Dermatitis allergic [Unknown]
